FAERS Safety Report 5377203-5 (Version None)
Quarter: 2007Q2

REPORT INFORMATION
  Report Type: 
  Country: None (occurrence: None)
  Receive Date: 20070530
  Receipt Date: 20070228
  Transmission Date: 20071010
  Serious: No
  Sender: FDA-Public Use
  Company Number: 2007PV030838

PATIENT
  Age: 56 Year
  Sex: Female
  Weight: 92.9874 kg

DRUGS (4)
  1. BYETTA [Suspect]
     Indication: DIABETES MELLITUS NON-INSULIN-DEPENDENT
     Dosage: 10 MCG; BID; 5 MCG; BID; SC
     Route: 058
     Dates: start: 20070119, end: 20070215
  2. BYETTA [Suspect]
     Indication: DIABETES MELLITUS NON-INSULIN-DEPENDENT
     Dosage: 10 MCG; BID; 5 MCG; BID; SC
     Route: 058
     Dates: start: 20070216
  3. METFORMIN HCL [Concomitant]
  4. PREVACID [Concomitant]

REACTIONS (8)
  - ABDOMINAL DISTENSION [None]
  - ABDOMINAL PAIN UPPER [None]
  - DRUG EFFECT DECREASED [None]
  - DYSGEUSIA [None]
  - FEELING COLD [None]
  - GASTROOESOPHAGEAL REFLUX DISEASE [None]
  - NAUSEA [None]
  - WEIGHT DECREASED [None]
